FAERS Safety Report 6922012-6 (Version None)
Quarter: 2010Q3

REPORT INFORMATION
  Report Type: 
  Country: None (occurrence: None)
  Receive Date: 20100812
  Receipt Date: 20100803
  Transmission Date: 20110219
  Serious: Yes (Other)
  Sender: FDA-Public Use
  Company Number: DE-BRISTOL-MYERS SQUIBB COMPANY-15219348

PATIENT
  Age: 70 Year
  Sex: Male
  Weight: 94 kg

DRUGS (8)
  1. APIXABAN [Suspect]
     Indication: EMBOLISM ARTERIAL
     Route: 048
     Dates: start: 20100202, end: 20100722
  2. WARFARIN SODIUM [Suspect]
     Indication: EMBOLISM ARTERIAL
     Dosage: 2-4 MG DAILY
     Route: 048
     Dates: start: 20100202, end: 20100722
  3. ENOXAPARIN SODIUM [Suspect]
     Indication: EMBOLISM ARTERIAL
  4. PLACEBO [Suspect]
     Indication: EMBOLISM ARTERIAL
     Route: 048
     Dates: start: 20100202, end: 20100722
  5. OLMESARTAN MEDOXOMIL [Concomitant]
     Dates: start: 20080701
  6. METOPROLOL [Concomitant]
     Dates: start: 20080701
  7. PANTOPRAZOLE [Concomitant]
     Dates: start: 20070101
  8. MUTAFLOR [Concomitant]
     Dates: start: 20100422

REACTIONS (2)
  - BLOOD BILIRUBIN INCREASED [None]
  - GILBERT'S SYNDROME [None]
